FAERS Safety Report 15980022 (Version 1)
Quarter: 2019Q1

REPORT INFORMATION
  Report Type: Spontaneous
  Country: US (occurrence: US)
  Receive Date: 20190219
  Receipt Date: 20190219
  Transmission Date: 20190418
  Serious: Yes (Other)
  Sender: FDA-Public Use
  Company Number: US-TORRENT-00007651

PATIENT
  Sex: Male
  Weight: 102 kg

DRUGS (1)
  1. LOSARTAN AND HYDROCHLOROTHIAZIDE [Suspect]
     Active Substance: HYDROCHLOROTHIAZIDE\LOSARTAN POTASSIUM
     Indication: HYPERTENSION
     Dosage: 100 MG  ONCE A DAY

REACTIONS (5)
  - Hypertensive heart disease [Not Recovered/Not Resolved]
  - Hypertrophic cardiomyopathy [Unknown]
  - Discomfort [Not Recovered/Not Resolved]
  - Fatigue [Unknown]
  - Chest pain [Unknown]

NARRATIVE: CASE EVENT DATE: 201901
